FAERS Safety Report 24130903 (Version 1)
Quarter: 2024Q3

REPORT INFORMATION
  Report Type: Spontaneous
  Country: LT (occurrence: LT)
  Receive Date: 20240724
  Receipt Date: 20240724
  Transmission Date: 20241017
  Serious: Yes (Hospitalization, Other)
  Sender: ARGENX BVBA
  Company Number: LT-Medison-000250

PATIENT

DRUGS (5)
  1. VYVGART [Suspect]
     Active Substance: EFGARTIGIMOD ALFA-FCAB
     Indication: Myasthenia gravis
     Dosage: 10 MG/KG, 1/WEEK (AS 1 HOUR IN CYCLES OF ONCE WEEKLY FOR 4 WEEKS)
     Route: 042
     Dates: start: 20240711
  2. AZATHIOPRINE [Concomitant]
     Active Substance: AZATHIOPRINE
     Indication: Myasthenia gravis
     Dosage: 150 MG, DAILY
     Route: 065
  3. PYRIDOSTIGMINE [Concomitant]
     Active Substance: PYRIDOSTIGMINE
     Indication: Myasthenia gravis
     Dosage: 60 MG X 4
     Route: 065
  4. PREDNISOLONE [Concomitant]
     Active Substance: PREDNISOLONE
     Indication: Myasthenia gravis
     Dosage: 20 MG, DAILY
     Route: 065
  5. NEOSTIGMINE [Concomitant]
     Active Substance: NEOSTIGMINE
     Indication: Myasthenia gravis
     Dosage: 0.5 MILLIGRAM PER MILLILITRE X 2
     Route: 058

REACTIONS (6)
  - Febrile infection [Not Recovered/Not Resolved]
  - Genital infection female [Not Recovered/Not Resolved]
  - Genital abscess [Unknown]
  - Abscess rupture [Unknown]
  - Labia enlarged [Unknown]
  - Vulvovaginal pain [Unknown]

NARRATIVE: CASE EVENT DATE: 20240712
